FAERS Safety Report 8258520-8 (Version None)
Quarter: 2012Q2

REPORT INFORMATION
  Report Type: 
  Country: None (occurrence: None)
  Receive Date: 20120404
  Receipt Date: 20120329
  Transmission Date: 20120825
  Serious: Yes (Death, Hospitalization, Other)
  Sender: FDA-Public Use
  Company Number: AU-PFIZER INC-2012034708

PATIENT
  Age: 37 Year
  Sex: Female

DRUGS (3)
  1. MIRTAZAPINE [Suspect]
     Dosage: 30 MG, 1X/DAY
  2. EFFEXOR XR [Suspect]
     Dosage: 150 MG, 1X/DAY
     Route: 048
  3. TEMAZEPAM [Concomitant]
     Indication: DEPRESSION
     Dosage: 10 MG, 1X/DAY AT NIGHT
     Route: 048

REACTIONS (6)
  - OVERDOSE [None]
  - ARRHYTHMIA [None]
  - COMPLETED SUICIDE [None]
  - VENTRICULAR TACHYCARDIA [None]
  - CARDIOTOXICITY [None]
  - ACIDOSIS [None]
